FAERS Safety Report 8890803 (Version 2)
Quarter: 2012Q4

REPORT INFORMATION
  Report Type: 
  Country: CA (occurrence: CA)
  Receive Date: 20121107
  Receipt Date: 20121211
  Transmission Date: 20130627
  Serious: No
  Sender: FDA-Public Use
  Company Number: CA-ASTELLAS-2012US010672

PATIENT
  Age: 50 Year
  Sex: Male

DRUGS (6)
  1. ADVAGRAF [Suspect]
     Indication: RENAL TRANSPLANT
     Dosage: 8 mg, Unknown/D
     Route: 065
     Dates: start: 20121025, end: 20121026
  2. ADVAGRAF [Suspect]
     Dosage: 8 mg, Unknown/D
     Route: 065
     Dates: start: 20121028
  3. PROGRAF [Suspect]
     Indication: RENAL TRANSPLANT
     Dosage: 8 mg, Total Dose
     Route: 065
     Dates: start: 20121027, end: 20121027
  4. MYCOPHENOLATE MOFETIL [Concomitant]
     Indication: PRODUCT USED FOR UNKNOWN INDICATION
     Dosage: UNK
     Route: 065
  5. PREDNISONE [Concomitant]
     Indication: PRODUCT USED FOR UNKNOWN INDICATION
     Dosage: 7.5 mg, UID/QD
     Route: 065
  6. WARFARIN [Concomitant]
     Indication: PRODUCT USED FOR UNKNOWN INDICATION
     Dosage: UNK
     Route: 065

REACTIONS (3)
  - Wrong drug administered [Unknown]
  - Epistaxis [Recovered/Resolved]
  - Diarrhoea [Recovered/Resolved]
